FAERS Safety Report 9718460 (Version 1)
Quarter: 2013Q4

REPORT INFORMATION
  Report Type: Spontaneous
  Country: US (occurrence: US)
  Receive Date: 20131125
  Receipt Date: 20131125
  Transmission Date: 20140711
  Serious: No
  Sender: FDA-Public Use
  Company Number: US-VIVUS-2013V1000632

PATIENT
  Age: 28 Year
  Sex: Female
  Weight: 96.7 kg

DRUGS (5)
  1. QSYMIA 3.75MG/23MG [Suspect]
     Indication: WEIGHT DECREASED
     Route: 048
     Dates: start: 20130816, end: 20130829
  2. REMICAID [Concomitant]
     Indication: CROHN^S DISEASE
     Route: 042
     Dates: start: 2008
  3. PREDNISONE [Concomitant]
     Indication: CROHN^S DISEASE
     Route: 048
  4. PAMELOR [Concomitant]
     Indication: ANXIETY
  5. MIRENA [Concomitant]
     Indication: CONTRACEPTION
     Route: 015

REACTIONS (2)
  - Headache [Not Recovered/Not Resolved]
  - Dizziness [Not Recovered/Not Resolved]
